FAERS Safety Report 8234880-9 (Version None)
Quarter: 2012Q1

REPORT INFORMATION
  Report Type: 
  Country: None (occurrence: None)
  Receive Date: 20120326
  Receipt Date: 20120319
  Transmission Date: 20120608
  Serious: Yes (Other)
  Sender: FDA-Public Use
  Company Number: NO-ABBOTT-12P-122-0916618-00

PATIENT
  Sex: Female

DRUGS (1)
  1. HUMIRA [Suspect]
     Indication: CROHN'S DISEASE
     Route: 051
     Dates: start: 20110531, end: 20111115

REACTIONS (6)
  - PHARYNGITIS [None]
  - LUNG INFILTRATION [None]
  - RASH [None]
  - ACUTE PHASE REACTION [None]
  - PYREXIA [None]
  - SYSTEMIC LUPUS ERYTHEMATOSUS [None]
